FAERS Safety Report 7380046-4 (Version None)
Quarter: 2011Q1

REPORT INFORMATION
  Report Type: 
  Country: None (occurrence: None)
  Receive Date: 20110329
  Receipt Date: 20110318
  Transmission Date: 20110831
  Serious: Yes (Hospitalization)
  Sender: FDA-Public Use
  Company Number: FR-SANOFI-AVENTIS-2011SA016409

PATIENT
  Age: 82 Year
  Sex: Male

DRUGS (10)
  1. OMIX [Concomitant]
  2. AVODART [Concomitant]
  3. DIFFU K [Concomitant]
  4. LASIX [Suspect]
     Route: 048
     Dates: end: 20100701
  5. ALDACTONE [Suspect]
     Route: 048
     Dates: end: 20100701
  6. KLIPAL [Suspect]
     Route: 048
     Dates: end: 20100701
  7. PERINDOPRIL [Suspect]
     Route: 048
  8. PREVISCAN [Concomitant]
  9. ESOMEPRAZOLE [Concomitant]
     Route: 048
  10. ALLOPURINOL [Concomitant]

REACTIONS (5)
  - COMA [None]
  - RESPIRATORY DISTRESS [None]
  - RENAL FAILURE ACUTE [None]
  - RASH [None]
  - MIOSIS [None]
